FAERS Safety Report 15223600 (Version 1)
Quarter: 2018Q3

REPORT INFORMATION
  Report Type: Spontaneous
  Country: JP (occurrence: JP)
  Receive Date: 20180731
  Receipt Date: 20180731
  Transmission Date: 20181010
  Serious: Yes (Hospitalization, Other)
  Sender: FDA-Public Use
  Company Number: JP-GILEAD-2018-0352436

PATIENT
  Sex: Male

DRUGS (1)
  1. HARVONI [Suspect]
     Active Substance: LEDIPASVIR\SOFOSBUVIR
     Indication: HEPATITIS
     Route: 065

REACTIONS (12)
  - Gastric fistula [Unknown]
  - Surgery [Unknown]
  - Angina pectoris [Unknown]
  - Schizophrenia [Unknown]
  - Hypertension [Unknown]
  - Weight decreased [Unknown]
  - Diarrhoea [Unknown]
  - Bedridden [Unknown]
  - Ill-defined disorder [Unknown]
  - Gallbladder disorder [Unknown]
  - Functional gastrointestinal disorder [Unknown]
  - Visual impairment [Unknown]
